FAERS Safety Report 14317251 (Version 2)
Quarter: 2018Q2

REPORT INFORMATION
  Report Type: Report from Study
  Country: UA (occurrence: UA)
  Receive Date: 20171222
  Receipt Date: 20180409
  Transmission Date: 20180711
  Serious: Yes (Other)
  Sender: FDA-Public Use
  Company Number: UA-TEVA-2017-UA-834300

PATIENT
  Age: 6 Year
  Sex: Female
  Weight: 16.6 kg

DRUGS (17)
  1. DOXORUBICIN [Suspect]
     Active Substance: DOXORUBICIN
     Indication: EWING^S SARCOMA
     Dosage: DATE OF LAST DOSE PRIOR TO SAE: 12-NOV-2017. 1,2,3 DAY OF CYCLE
     Route: 042
     Dates: start: 20171110
  2. AUROTAZ [Concomitant]
     Indication: NEUTROPENIA
     Dosage: 4.5 GRAM DAILY;
     Route: 042
     Dates: start: 20171025, end: 20171028
  3. DEXKETOPROFEN TROMETAMOL [Concomitant]
     Active Substance: DEXKETOPROFEN TROMETAMOL
     Indication: STOMATITIS
     Route: 042
     Dates: start: 20171120, end: 20171121
  4. ETOPOSIDE. [Suspect]
     Active Substance: ETOPOSIDE
     Indication: EWING^S SARCOMA
     Dosage: DAY 1,2,3 OF CYCLE. DATE OF LAST DOSE PRIOR TO SAE: 05-DEC-2017
     Route: 042
     Dates: start: 20171203
  5. IBUPROFEN. [Concomitant]
     Active Substance: IBUPROFEN
     Indication: PYREXIA
     Dosage: 200 MILLIGRAM DAILY;
     Route: 048
     Dates: start: 20171023, end: 20171023
  6. VFEND [Concomitant]
     Active Substance: VORICONAZOLE
     Indication: STOMATITIS
     Route: 042
     Dates: start: 20171120, end: 20171120
  7. LONQUEX [Suspect]
     Active Substance: LIPEGFILGRASTIM
  8. AMIKACIN. [Concomitant]
     Active Substance: AMIKACIN
     Indication: NEUTROPENIA
     Dosage: 240 MILLIGRAM DAILY;
     Route: 042
     Dates: start: 20171025, end: 20171028
  9. ONDANSETRON [Concomitant]
     Active Substance: ONDANSETRON
     Indication: PROPHYLAXIS OF NAUSEA AND VOMITING
     Dosage: 12 MILLIGRAM DAILY;
     Route: 042
     Dates: start: 20171017, end: 20171020
  10. ONDANSETRON [Concomitant]
     Active Substance: ONDANSETRON
     Dosage: 12 MILLIGRAM DAILY;
     Route: 042
     Dates: start: 20171109, end: 20171112
  11. IFOSFAMIDE. [Suspect]
     Active Substance: IFOSFAMIDE
     Indication: EWING^S SARCOMA
     Dosage: 1,2,3 DAY OF CYCLE. DATE OF LAST DOSE PRIOR TO SAE: 04-DEC-2017
     Route: 042
     Dates: start: 20171202
  12. IBUPROFEN. [Concomitant]
     Active Substance: IBUPROFEN
     Dosage: 200 MILLIGRAM DAILY;
     Route: 048
     Dates: start: 20171117, end: 20171117
  13. VFEND [Concomitant]
     Active Substance: VORICONAZOLE
     Route: 042
     Dates: start: 20171121, end: 20171123
  14. NEUPOGEN [Suspect]
     Active Substance: FILGRASTIM
     Indication: COLONY STIMULATING FACTOR PROPHYLAXIS
     Dosage: 85 MICROGRAM DAILY; LAST DOSE PRIOR TO SAE: 08-DEC-2017. FIRST DOSE OF THE CURRENT CYCLE: 06-DEC-201
     Route: 058
     Dates: start: 20171021
  15. VINCRISTINE [Suspect]
     Active Substance: VINCRISTINE
     Indication: EWING^S SARCOMA
     Dosage: 1 DAY OF CYCLE. DATE OF LAST DOSE PRIOR TO SAE: 02-DEC-2017
     Route: 042
     Dates: start: 20171202
  16. ERYTHROPOIETIN [Concomitant]
     Active Substance: ERYTHROPOIETIN
     Indication: ANAEMIA
     Route: 058
     Dates: start: 20171122
  17. ONDANSETRON [Concomitant]
     Active Substance: ONDANSETRON
     Dosage: 12 MILLIGRAM DAILY;
     Route: 042
     Dates: start: 20171202, end: 20171204

REACTIONS (2)
  - Leukopenia [Recovered/Resolved]
  - Febrile neutropenia [Recovered/Resolved]

NARRATIVE: CASE EVENT DATE: 20171209
